FAERS Safety Report 4803790-9 (Version None)
Quarter: 2005Q4

REPORT INFORMATION
  Report Type: 
  Country: None (occurrence: None)
  Receive Date: 20051019
  Receipt Date: 20050426
  Transmission Date: 20060501
  Serious: Yes (Hospitalization)
  Sender: FDA-Public Use
  Company Number: US-MERCK-0504USA04791

PATIENT
  Age: 59 Year
  Sex: Male
  Weight: 91 kg

DRUGS (5)
  1. VIOXX [Suspect]
     Indication: OSTEOARTHRITIS
     Route: 048
     Dates: start: 20010915, end: 20031015
  2. VIOXX [Suspect]
     Route: 048
     Dates: start: 20010915, end: 20031015
  3. VIOXX [Suspect]
     Route: 048
     Dates: start: 20040401, end: 20040901
  4. VIOXX [Suspect]
     Route: 048
     Dates: start: 20040401, end: 20040901
  5. ZOCOR [Concomitant]
     Route: 048

REACTIONS (3)
  - ARTHROPATHY [None]
  - DEPRESSION [None]
  - MYOCARDIAL INFARCTION [None]
